FAERS Safety Report 13183701 (Version 2)
Quarter: 2017Q1

REPORT INFORMATION
  Report Type: Spontaneous
  Country: US (occurrence: US)
  Receive Date: 20170203
  Receipt Date: 20170213
  Transmission Date: 20170428
  Serious: Yes (Death, Hospitalization, Other)
  Sender: FDA-Public Use
  Company Number: US-ASTELLAS-2017US004248

PATIENT
  Age: 71 Year
  Sex: Female

DRUGS (1)
  1. TARCEVA [Suspect]
     Active Substance: ERLOTINIB HYDROCHLORIDE
     Indication: PRODUCT USED FOR UNKNOWN INDICATION
     Route: 048
     Dates: start: 20170118

REACTIONS (10)
  - Death [Fatal]
  - Anxiety [Unknown]
  - Atrial fibrillation [Unknown]
  - Fatigue [Unknown]
  - Speech disorder [Unknown]
  - Cachexia [Unknown]
  - Chronic obstructive pulmonary disease [Unknown]
  - Leukocytosis [Unknown]
  - Dyspnoea [Unknown]
  - Asthenia [Unknown]

NARRATIVE: CASE EVENT DATE: 20170130
